FAERS Safety Report 4509737-7 (Version None)
Quarter: 2004Q4

REPORT INFORMATION
  Report Type: 
  Country: None (occurrence: None)
  Receive Date: 20041124
  Receipt Date: 20041122
  Transmission Date: 20050328
  Serious: Yes (Hospitalization)
  Sender: FDA-Public Use
  Company Number: PHNR2004AU01650

PATIENT
  Age: 40 Year
  Sex: Female

DRUGS (3)
  1. CLOZARIL [Suspect]
     Indication: SCHIZOPHRENIA
     Dosage: 25 - 900 MG/DAY
     Route: 048
     Dates: start: 20010831, end: 20041018
  2. CLOZARIL [Suspect]
     Dosage: 600 MG, QD
     Route: 048
     Dates: start: 20041020
  3. ANTIDEPRESSANTS [Concomitant]

REACTIONS (8)
  - ARTHRALGIA [None]
  - FEELING HOT AND COLD [None]
  - HEADACHE [None]
  - LETHARGY [None]
  - MUSCULOSKELETAL STIFFNESS [None]
  - MYALGIA [None]
  - SALIVARY HYPERSECRETION [None]
  - TONGUE BITING [None]
